FAERS Safety Report 11179886 (Version 1)
Quarter: 2015Q2

REPORT INFORMATION
  Report Type: Spontaneous
  Country: FR (occurrence: FR)
  Receive Date: 20150611
  Receipt Date: 20150611
  Transmission Date: 20150821
  Serious: Yes (Hospitalization)
  Sender: FDA-Public Use
  Company Number: FR-ELI_LILLY_AND_COMPANY-FR201505008224

PATIENT
  Age: 14 Year
  Sex: Female

DRUGS (6)
  1. CARBAMAZEPINE. [Interacting]
     Active Substance: CARBAMAZEPINE
     Dosage: 200 MG, TID
     Route: 048
  2. CARBAMAZEPINE. [Interacting]
     Active Substance: CARBAMAZEPINE
     Dosage: 200 MG, QD
     Route: 048
  3. FLUOXETINE [Suspect]
     Active Substance: FLUOXETINE\FLUOXETINE HYDROCHLORIDE
     Indication: MENTAL DISORDER
     Dosage: 30 MG, QD
     Route: 048
  4. RISPERIDONE. [Interacting]
     Active Substance: RISPERIDONE
     Indication: MENTAL DISORDER
     Dosage: 2 MG, QD
     Route: 048
  5. CARBAMAZEPINE. [Interacting]
     Active Substance: CARBAMAZEPINE
     Indication: AFFECT LABILITY
     Dosage: 200 MG, SINGLE
     Route: 048
  6. CARBAMAZEPINE. [Interacting]
     Active Substance: CARBAMAZEPINE
     Indication: IMPULSIVE BEHAVIOUR
     Dosage: 200 MG, BID
     Route: 048

REACTIONS (10)
  - Affect lability [Unknown]
  - Impulsive behaviour [Unknown]
  - Drug interaction [Recovered/Resolved]
  - Headache [Recovered/Resolved]
  - Nausea [Recovered/Resolved]
  - Abdominal pain [Recovered/Resolved]
  - Vision blurred [Recovered/Resolved]
  - Dizziness [Recovered/Resolved]
  - Drug level increased [Recovered/Resolved]
  - Asthenia [Recovered/Resolved]
